FAERS Safety Report 6155901-3 (Version None)
Quarter: 2009Q2

REPORT INFORMATION
  Report Type: 
  Country: None (occurrence: None)
  Receive Date: 20090415
  Receipt Date: 20090413
  Transmission Date: 20091009
  Serious: Yes (Life-Threatening, Hospitalization)
  Sender: FDA-Public Use
  Company Number: PHEH2009US02562

PATIENT
  Sex: Female
  Weight: 67.574 kg

DRUGS (6)
  1. RECLAST [Suspect]
     Indication: OSTEOPOROSIS
     Dosage: 5 MG, ONCE/SINGLE
     Dates: start: 20090304
  2. RECLAST [Suspect]
     Indication: GASTROOESOPHAGEAL REFLUX DISEASE
  3. LISINOPRIL [Concomitant]
     Indication: HYPERTENSION
     Route: 048
  4. CALCIUM [Concomitant]
     Indication: SUPPLEMENTATION THERAPY
     Route: 048
  5. ALBUTEROL [Concomitant]
     Indication: ASTHMA
  6. OMEPRAZOLE [Concomitant]
     Route: 048

REACTIONS (2)
  - DYSPNOEA [None]
  - RESPIRATORY ARREST [None]
